FAERS Safety Report 5117139-8 (Version None)
Quarter: 2006Q3

REPORT INFORMATION
  Report Type: 
  Country: None (occurrence: None)
  Receive Date: 20060929
  Receipt Date: 20060815
  Transmission Date: 20061208
  Serious: Yes (Other)
  Sender: FDA-Public Use
  Company Number: DE-ABBOTT-06P-062-0340728-00

PATIENT
  Sex: Male

DRUGS (9)
  1. ERGENYL CHRONO TABLETS [Suspect]
     Indication: BIPOLAR DISORDER
     Route: 048
     Dates: start: 20060714, end: 20060815
  2. PHENPROCOUMON [Concomitant]
     Indication: HEART VALVE REPLACEMENT
     Dosage: ACCORDING TO QUICK'S TEST
     Route: 048
  3. PHENPROCOUMON [Concomitant]
     Indication: ATRIAL FIBRILLATION
  4. RISPERIDONE [Concomitant]
     Indication: BIPOLAR DISORDER
     Route: 048
  5. LEVOMEPROMAZINE MALEATE [Concomitant]
     Indication: BIPOLAR DISORDER
     Route: 048
  6. ENALAPRIL [Concomitant]
     Indication: ESSENTIAL HYPERTENSION
     Route: 048
  7. TORSEMIDE [Concomitant]
     Indication: ESSENTIAL HYPERTENSION
     Route: 048
  8. CARVEDILOL [Concomitant]
     Indication: CARDIOMYOPATHY
     Route: 048
  9. AMIODARONE HYDROCHLORIDE [Concomitant]
     Indication: CARDIOMYOPATHY
     Route: 048

REACTIONS (4)
  - ASTHENIA [None]
  - BLOOD BILIRUBIN INCREASED [None]
  - FATIGUE [None]
  - JAUNDICE [None]
